FAERS Safety Report 8560244-4 (Version None)
Quarter: 2012Q3

REPORT INFORMATION
  Report Type: 
  Country: None (occurrence: None)
  Receive Date: 20120802
  Receipt Date: 20120724
  Transmission Date: 20120928
  Serious: Yes (Hospitalization)
  Sender: FDA-Public Use
  Company Number: KR-SANOFI-AVENTIS-200919863GDDC

PATIENT
  Age: 60 Year
  Sex: Male
  Weight: 53.6 kg

DRUGS (8)
  1. CISPLATIN [Suspect]
     Route: 042
     Dates: start: 20090622, end: 20090622
  2. DOCETAXEL [Suspect]
     Route: 042
     Dates: start: 20090622, end: 20090622
  3. ORAL BLOOD GLUCOSE LOWERING DRUGS [Concomitant]
     Route: 048
  4. MOLSIDOMINE [Concomitant]
     Route: 048
  5. HYDROMORPHINE HYDROCHLORIDE [Concomitant]
     Route: 048
  6. MAGNESIUM OXIDE [Concomitant]
     Route: 048
  7. METFORMIN HYDROCHLORIDE [Concomitant]
     Route: 048
  8. EPROSARTAN MESYLATE [Concomitant]
     Route: 048

REACTIONS (3)
  - DIARRHOEA [None]
  - HICCUPS [None]
  - DYSPNOEA [None]
